FAERS Safety Report 7277889-4 (Version None)
Quarter: 2011Q1

REPORT INFORMATION
  Report Type: 
  Country: None (occurrence: None)
  Receive Date: 20110207
  Receipt Date: 20110202
  Transmission Date: 20110831
  Serious: Yes (Death, Life-Threatening, Hospitalization, Other)
  Sender: FDA-Public Use
  Company Number: BE-ROCHE-659962

PATIENT
  Sex: Male
  Weight: 55 kg

DRUGS (15)
  1. LEDERTREXATE [Concomitant]
     Indication: RHEUMATOID ARTHRITIS
     Route: 048
     Dates: start: 20050101, end: 20091014
  2. PIROXICAM [Concomitant]
     Dates: start: 19900101
  3. BECOZYME [Concomitant]
  4. PANTOPRAZOLE [Concomitant]
     Indication: ULCER
     Route: 048
  5. ASAFLOW [Concomitant]
  6. LORMETAZEPAM [Concomitant]
  7. TOCILIZUMAB [Suspect]
     Indication: RHEUMATOID ARTHRITIS
     Dosage: FREQUENCY: ONCE.
     Route: 042
     Dates: start: 20090915, end: 20090915
  8. CORTICOSTEROIDS [Concomitant]
     Indication: CROHN'S DISEASE
  9. MICARDIS [Concomitant]
     Indication: HYPERTENSION
     Dosage: DOSE: 92.5 UNIT UNSPECIFIED ONCE DAILY.
     Route: 048
  10. MEDROL [Concomitant]
     Indication: CROHN'S DISEASE
     Route: 048
     Dates: start: 20020101
  11. FOLINIC ACID [Concomitant]
     Dosage: DAILY
  12. CALCIUM CARBONATE [Concomitant]
     Dosage: DAILY
  13. METHOTREXATE [Concomitant]
     Route: 048
     Dates: start: 20070606, end: 20091014
  14. LASIX [Concomitant]
  15. MEDROL [Concomitant]
     Route: 048
     Dates: start: 20090901

REACTIONS (8)
  - BRONCHOPULMONARY ASPERGILLOSIS [None]
  - CROHN'S DISEASE [None]
  - ILEAL ULCER PERFORATION [None]
  - SMALL INTESTINAL HAEMORRHAGE [None]
  - PANCYTOPENIA [None]
  - NAUSEA [None]
  - DIZZINESS [None]
  - FEBRILE NEUTROPENIA [None]
